FAERS Safety Report 4741439-4 (Version None)
Quarter: 2005Q3

REPORT INFORMATION
  Report Type: 
  Country: None (occurrence: None)
  Receive Date: 20050808
  Receipt Date: 20050730
  Transmission Date: 20060218
  Serious: Yes (Hospitalization)
  Sender: FDA-Public Use
  Company Number: 200511535BWH

PATIENT
  Age: 75 Year

DRUGS (1)
  1. AVELOX [Suspect]
     Dosage: 400 MG, BID, ORAL
     Route: 048

REACTIONS (2)
  - ELECTROCARDIOGRAM ST SEGMENT ABNORMAL [None]
  - OVERDOSE [None]
